FAERS Safety Report 22278083 (Version 4)
Quarter: 2024Q1

REPORT INFORMATION
  Report Type: Report from Study
  Country: US (occurrence: US)
  Receive Date: 20230503
  Receipt Date: 20240104
  Transmission Date: 20240410
  Serious: Yes (Other)
  Sender: FDA-Public Use
  Company Number: US-ABBVIE-4746307

PATIENT
  Age: 94 Year
  Sex: Female
  Weight: 65.77 kg

DRUGS (2)
  1. SKYRIZI [Suspect]
     Active Substance: RISANKIZUMAB-RZAA
     Indication: Psoriasis
     Dosage: FORM STRENGTH: 150 MG/ML
     Route: 058
     Dates: start: 20220627
  2. SKYRIZI [Suspect]
     Active Substance: RISANKIZUMAB-RZAA
     Indication: Psoriatic arthropathy

REACTIONS (5)
  - Hip fracture [Recovering/Resolving]
  - Asthenia [Not Recovered/Not Resolved]
  - Weight bearing difficulty [Unknown]
  - Fall [Unknown]
  - Grief reaction [Not Recovered/Not Resolved]

NARRATIVE: CASE EVENT DATE: 20230306
